FAERS Safety Report 7621570-6 (Version None)
Quarter: 2011Q3

REPORT INFORMATION
  Report Type: 
  Country: None (occurrence: None)
  Receive Date: 20110719
  Receipt Date: 20110623
  Transmission Date: 20111222
  Serious: No
  Sender: FDA-Public Use
  Company Number: US-BAYER-2011-057746

PATIENT
  Sex: Female

DRUGS (1)
  1. CIPROFLOXACIN HCL [Suspect]
     Dosage: 250 MG, BID
     Route: 048

REACTIONS (1)
  - NO ADVERSE EVENT [None]
